FAERS Safety Report 6747901-7 (Version None)
Quarter: 2010Q2

REPORT INFORMATION
  Report Type: 
  Country: None (occurrence: None)
  Receive Date: 20100528
  Receipt Date: 20100520
  Transmission Date: 20101027
  Serious: Yes (Hospitalization, Other)
  Sender: FDA-Public Use
  Company Number: US-AMGEN-QUU413579

PATIENT
  Sex: Male

DRUGS (2)
  1. ARANESP [Suspect]
     Indication: RENAL FAILURE CHRONIC
  2. PROCRIT [Suspect]
     Indication: RENAL FAILURE CHRONIC

REACTIONS (2)
  - EOSINOPHILIA [None]
  - THERAPEUTIC RESPONSE DECREASED [None]
